FAERS Safety Report 4430204-3 (Version None)
Quarter: 2004Q3

REPORT INFORMATION
  Report Type: 
  Country: None (occurrence: None)
  Receive Date: 20040819
  Receipt Date: 20040819
  Transmission Date: 20050211
  Serious: Yes (Life-Threatening)
  Sender: FDA-Public Use
  Company Number: None

PATIENT
  Age: 70 Year
  Sex: Male
  Weight: 64 kg

DRUGS (1)
  1. METHOTREXATE [Suspect]
     Indication: ARTHRITIS
     Dosage: 12.5MG  QWEEK

REACTIONS (4)
  - PANCYTOPENIA [None]
  - PHARYNGOLARYNGEAL PAIN [None]
  - RASH [None]
  - WEIGHT DECREASED [None]
